FAERS Safety Report 9977698 (Version 2)
Quarter: 2014Q1

REPORT INFORMATION
  Report Type: Report from Study
  Country: US (occurrence: US)
  Receive Date: 20140306
  Receipt Date: 20140306
  Transmission Date: 20141002
  Serious: No
  Sender: FDA-Public Use
  Company Number: US-ABBVIE-13P-163-1152750-00

PATIENT
  Age: 58 Year
  Sex: Female

DRUGS (6)
  1. HUMIRA [Suspect]
     Indication: PSORIASIS
     Dates: start: 20130924
  2. LAMICTAL [Concomitant]
     Indication: BIPOLAR DISORDER
     Dosage: BEDTIME
  3. SEROQUEL [Concomitant]
     Indication: BIPOLAR DISORDER
     Dosage: BEDTIME
  4. KLONOPIN [Concomitant]
     Indication: BIPOLAR DISORDER
     Dosage: BEDTIME
  5. LEXAPRO [Concomitant]
     Indication: BIPOLAR DISORDER
     Dosage: BEDTIME
  6. CELEXA [Concomitant]
     Indication: ANXIETY
     Dosage: BEDTIME

REACTIONS (4)
  - Breast pain [Not Recovered/Not Resolved]
  - Fatigue [Not Recovered/Not Resolved]
  - Chest pain [Not Recovered/Not Resolved]
  - Hot flush [Recovered/Resolved]
